FAERS Safety Report 9507535 (Version 1)
Quarter: 2013Q3

REPORT INFORMATION
  Report Type: Spontaneous
  Country: JP (occurrence: JP)
  Receive Date: 20130909
  Receipt Date: 20130909
  Transmission Date: 20140515
  Serious: Yes (Hospitalization)
  Sender: FDA-Public Use
  Company Number: JP-ASTELLAS-2013US009339

PATIENT
  Age: 80 Year
  Sex: 0

DRUGS (1)
  1. TARCEVA [Suspect]
     Indication: LUNG NEOPLASM MALIGNANT
     Dosage: 25 MG, UID/QD
     Route: 048
     Dates: start: 20110701, end: 20130819

REACTIONS (2)
  - Incorrect dose administered [Unknown]
  - Agranulocytosis [Recovered/Resolved]
